FAERS Safety Report 8764967 (Version 2)
Quarter: 2012Q4

REPORT INFORMATION
  Report Type: 
  Country: US (occurrence: US)
  Receive Date: 20120902
  Receipt Date: 20120911
  Transmission Date: 20130627
  Serious: Yes (Hospitalization, Other)
  Sender: FDA-Public Use
  Company Number: US-AMGEN-USASP2012054714

PATIENT
  Age: 57 Year
  Sex: Female
  Weight: 69.84 kg

DRUGS (12)
  1. ENBREL [Suspect]
     Indication: RHEUMATOID ARTHRITIS
     Dosage: 50 mg, qwk
     Route: 058
     Dates: start: 20071105
  2. DIAZEPAM [Concomitant]
     Indication: ANXIETY
     Dosage: 10 mg, tid
     Route: 048
     Dates: start: 20060824
  3. NYSTATIN [Concomitant]
     Dosage: 5ml four times a day
     Dates: start: 20061201
  4. CALCIUM [Concomitant]
     Dosage: 500 mg, tid
     Route: 048
     Dates: start: 20070516
  5. TRIAMTERENE/HCTZ [Concomitant]
     Dosage: one tablet daily
     Route: 048
     Dates: start: 20080104
  6. MORPHINE SULFATE [Concomitant]
     Indication: PAIN
     Dosage: 60 mg, bid
     Route: 048
     Dates: start: 20090216
  7. MORPHINE SULFATE [Concomitant]
     Dosage: 15 mg, 1-2 tablets every 6 hourly as needed.
     Route: 048
     Dates: start: 20090529
  8. CARISOPRODOL [Concomitant]
     Dosage: 350 mg, as needed
     Route: 048
     Dates: start: 20090803
  9. POLYETHYLENE GLYCOL [Concomitant]
     Dosage: one CAP full in 8 onches of water or juice daily
     Route: 048
     Dates: start: 20100208
  10. PREDNISONE [Concomitant]
     Dosage: 05 mg, bid
     Route: 048
     Dates: start: 20100412
  11. LISINOPRIL [Concomitant]
     Dosage: 10 mg, qd
     Route: 048
  12. FLUCONAZOLE [Concomitant]
     Dosage: 100 mg, qd
     Route: 048
     Dates: start: 20120612

REACTIONS (9)
  - Hemiparesis [Not Recovered/Not Resolved]
  - Decubitus ulcer [Recovered/Resolved]
  - Diarrhoea [Recovered/Resolved]
  - Pneumonia [Recovered/Resolved]
  - Loss of consciousness [Recovered/Resolved]
  - Bedridden [Recovered/Resolved]
  - Memory impairment [Not Recovered/Not Resolved]
  - Fibromyalgia [Not Recovered/Not Resolved]
  - Contusion [Not Recovered/Not Resolved]
